FAERS Safety Report 9674516 (Version 2)
Quarter: 2013Q4

REPORT INFORMATION
  Report Type: Spontaneous
  Country: DE (occurrence: DE)
  Receive Date: 20131107
  Receipt Date: 20131129
  Transmission Date: 20140711
  Serious: Yes (Hospitalization)
  Sender: FDA-Public Use
  Company Number: DE-BRISTOL-MYERS SQUIBB COMPANY-19711647

PATIENT
  Age: 73 Year
  Sex: Female
  Weight: 75 kg

DRUGS (15)
  1. ELIQUIS [Suspect]
     Indication: ATRIAL FIBRILLATION
     Route: 048
     Dates: end: 20131026
  2. PREDNISOLONE [Concomitant]
  3. KEPPRA [Concomitant]
  4. METOPROLOL [Concomitant]
  5. TOREM [Concomitant]
  6. LEVOTHYROXINE [Concomitant]
  7. FEBUXOSTAT [Concomitant]
  8. VIGANTOLETTEN [Concomitant]
  9. EUPHYLONG [Concomitant]
  10. OMEPRAZOLE [Concomitant]
  11. PULMICORT [Concomitant]
  12. SALBUTAMOL [Concomitant]
  13. ASPIRIN [Concomitant]
  14. NOVAMIN [Concomitant]
  15. PARACETAMOL [Concomitant]

REACTIONS (1)
  - Pulmonary sarcoidosis [Not Recovered/Not Resolved]
